FAERS Safety Report 20632478 (Version 1)
Quarter: 2022Q1

REPORT INFORMATION
  Report Type: 
  Country: US (occurrence: US)
  Receive Date: 20220324
  Receipt Date: 20220324
  Transmission Date: 20220423
  Serious: Yes (Disabling)
  Sender: FDA-Public Use
  Company Number: US-C B Fleet Co Inc-202202-US-000731

PATIENT
  Sex: Male

DRUGS (1)
  1. CLEAR EYES REDNESS RELIEF [Suspect]
     Active Substance: GLYCERIN\NAPHAZOLINE HYDROCHLORIDE
     Indication: Ocular hyperaemia
     Dosage: DOSE UNKNOWN
     Route: 047

REACTIONS (1)
  - Blindness [Unknown]
